FAERS Safety Report 6007286-0 (Version None)
Quarter: 2008Q4

REPORT INFORMATION
  Report Type: 
  Country: None (occurrence: None)
  Receive Date: 20081217
  Receipt Date: 20080225
  Transmission Date: 20090506
  Serious: No
  Sender: FDA-Public Use
  Company Number: US-ASTRAZENECA-2008UW03886

PATIENT
  Age: 55 Year
  Sex: Female
  Weight: 72.6 kg

DRUGS (5)
  1. CRESTOR [Suspect]
     Indication: BLOOD CHOLESTEROL
     Route: 048
     Dates: start: 20070101
  2. WARFARIN SODIUM [Concomitant]
  3. CARDIZEM [Concomitant]
  4. LISINOPRIL [Concomitant]
     Route: 048
  5. LEXAPRO [Concomitant]

REACTIONS (1)
  - JOINT SWELLING [None]
